FAERS Safety Report 6699892-5 (Version None)
Quarter: 2010Q2

REPORT INFORMATION
  Report Type: 
  Country: None (occurrence: None)
  Receive Date: 20100428
  Receipt Date: 20100423
  Transmission Date: 20101027
  Serious: Yes (Death, Hospitalization, Other)
  Sender: FDA-Public Use
  Company Number: ES-SANOFI-AVENTIS-200113407EU

PATIENT
  Age: 63 Year
  Sex: Female

DRUGS (5)
  1. DOCETAXEL [Suspect]
     Route: 042
     Dates: start: 20000315, end: 20000628
  2. ADRIAMYCIN PFS [Suspect]
     Route: 042
     Dates: start: 20000315, end: 20000628
  3. CYTOXAN [Suspect]
     Route: 042
     Dates: start: 20000315, end: 20000628
  4. DIGOXIN [Concomitant]
     Indication: CARDIOMYOPATHY
     Dates: end: 20090615
  5. CARVEDILOL [Concomitant]
     Indication: CARDIOMYOPATHY
     Dates: end: 20090615

REACTIONS (8)
  - CARDIAC FAILURE CONGESTIVE [None]
  - CONGESTIVE CARDIOMYOPATHY [None]
  - DYSPNOEA [None]
  - GENERALISED OEDEMA [None]
  - HYPOTENSION [None]
  - PLEURAL EFFUSION [None]
  - RENAL FAILURE CHRONIC [None]
  - VENTRICULAR DYSFUNCTION [None]
